FAERS Safety Report 9842971 (Version 2)
Quarter: 2014Q1

REPORT INFORMATION
  Report Type: Spontaneous
  Country: US (occurrence: US)
  Receive Date: 20140124
  Receipt Date: 20140317
  Transmission Date: 20141002
  Serious: Yes (Hospitalization, Other)
  Sender: FDA-Public Use
  Company Number: US-PFIZER INC-2014018763

PATIENT
  Age: 66 Year
  Sex: Male
  Weight: 94.79 kg

DRUGS (9)
  1. XALATAN [Suspect]
     Indication: GLAUCOMA
     Dosage: 3 GTT, EACH EYE, 1X/DAY
     Route: 047
  2. XALATAN [Suspect]
     Dosage: 1 DROP QHS BOTH EYES
     Route: 047
  3. LISINOPRIL [Concomitant]
     Dosage: 10 MG, 1X/DAY
  4. LISINOPRIL [Concomitant]
     Dosage: 20 MG, UNK
  5. ASPIRIN [Concomitant]
     Dosage: 81 MG, 1X/DAY
  6. ALPHAGAN [Concomitant]
     Dosage: 1.4 ML, UNK
  7. COSOPT [Concomitant]
     Dosage: 1 DROP TID BOTH EYES
     Route: 047
  8. DIAMOX SEQUELS [Concomitant]
     Dosage: 500 MG, 4X/DAY
  9. ALPHAGAN P [Concomitant]
     Dosage: 1 GTT, 3X/DAY BOTH EYES
     Route: 047

REACTIONS (24)
  - Prostate cancer [Unknown]
  - Dysuria [Recovered/Resolved]
  - Urinary tract infection [Recovered/Resolved]
  - Pain [Recovered/Resolved]
  - Micturition disorder [Recovered/Resolved]
  - Burning sensation [Recovered/Resolved]
  - Bladder disorder [Recovered/Resolved]
  - Incorrect dose administered [Unknown]
  - Eye swelling [Unknown]
  - Visual impairment [Recovering/Resolving]
  - Conjunctivitis [Unknown]
  - Cutis laxa [Unknown]
  - Age-related macular degeneration [Unknown]
  - Eye disorder [Unknown]
  - Vitreous opacities [Unknown]
  - Visual field defect [Unknown]
  - Dry eye [Unknown]
  - Corneal oedema [Unknown]
  - Corneal degeneration [Unknown]
  - Blepharochalasis [Unknown]
  - Eyelid ptosis [Unknown]
  - Dandruff [Unknown]
  - Retinopathy hypertensive [Unknown]
  - Vitreous floaters [Unknown]
